FAERS Safety Report 4619119-5 (Version None)
Quarter: 2005Q1

REPORT INFORMATION
  Report Type: 
  Country: None (occurrence: None)
  Receive Date: 20050325
  Receipt Date: 20050317
  Transmission Date: 20050727
  Serious: Yes (Disabling)
  Sender: FDA-Public Use
  Company Number: FR-SANOFI-SYNTHELABO-A02200500763

PATIENT
  Age: 40 Year
  Sex: Male

DRUGS (1)
  1. ZOLPIDEM TARTRATE [Suspect]
     Dosage: 500 TO 1000 MG DAILY
     Route: 048
     Dates: start: 19980101

REACTIONS (5)
  - BRADYPHRENIA [None]
  - DRUG ABUSER [None]
  - LETHARGY [None]
  - OSTEOPOROSIS [None]
  - SPINAL COMPRESSION FRACTURE [None]
